FAERS Safety Report 7227036-X (Version None)
Quarter: 2011Q1

REPORT INFORMATION
  Report Type: 
  Country: None (occurrence: None)
  Receive Date: 20110114
  Receipt Date: 20110104
  Transmission Date: 20110831
  Serious: Yes (Hospitalization, Other)
  Sender: FDA-Public Use
  Company Number: CA-CELGENEUS-028-21880-06110770

PATIENT
  Sex: Male
  Weight: 62.7 kg

DRUGS (48)
  1. PROCHLORPERAZINE [Concomitant]
     Route: 051
     Dates: start: 20061121
  2. SENNA GLYCOSIDES [Concomitant]
     Route: 048
     Dates: start: 20061115, end: 20061101
  3. POTASSIUM CHLORIDE [Concomitant]
     Route: 048
     Dates: start: 20061124
  4. SODIUM CHLORIDE 0.9% [Concomitant]
     Route: 051
     Dates: start: 20061123
  5. OLANZAPINE [Concomitant]
     Dosage: 2.5 - 5 MG
     Route: 048
     Dates: start: 20061112
  6. MORPHINE SULFATE [Concomitant]
     Dosage: 2 - 4 MG
     Route: 051
     Dates: start: 20061115, end: 20061122
  7. POTASSIUM CHLORIDE [Concomitant]
     Route: 048
     Dates: start: 20061115
  8. MAGNESIUM-CASCARA [Concomitant]
     Route: 048
     Dates: start: 20061116
  9. OXYCODONE-ACETAMIN [Concomitant]
     Dosage: 1 - 2
     Route: 048
     Dates: start: 20061116
  10. ATROPINE [Concomitant]
     Route: 051
     Dates: start: 20061113
  11. ATROPINE [Concomitant]
     Route: 051
     Dates: start: 20061113
  12. POTASSIUM [Concomitant]
     Route: 065
  13. ASPIRIN [Concomitant]
     Indication: THROMBOSIS PROPHYLAXIS
     Route: 048
     Dates: start: 20060101
  14. ALLOPURINOL [Concomitant]
     Indication: PROPHYLAXIS
     Route: 048
     Dates: start: 20061002, end: 20061026
  15. ONDANSETRON [Concomitant]
     Dosage: 2 - 4 MG
     Dates: start: 20061115, end: 20061122
  16. POTASSIUM CHLORIDE [Concomitant]
     Route: 048
     Dates: start: 20061116
  17. PREDNISONE [Concomitant]
     Route: 048
     Dates: start: 20061013, end: 20061026
  18. PROCHLORPERAZINE [Concomitant]
     Route: 048
     Dates: start: 20061121
  19. OLANZAPINE [Concomitant]
     Dosage: 2.5 - 5 MG
     Route: 048
     Dates: start: 20061113
  20. NA POLYSTYR SULF RESIN [Concomitant]
     Route: 048
     Dates: start: 20061113
  21. SODIUM BICARBONATE [Concomitant]
     Route: 048
     Dates: start: 20061115
  22. ONDANSETRON [Concomitant]
     Route: 051
     Dates: start: 20061122
  23. MAGNESIUM CITRATE [Concomitant]
     Route: 048
     Dates: start: 20061116
  24. AMIODARONE [Concomitant]
     Route: 051
     Dates: start: 20061120, end: 20061121
  25. ALLOPURINOL [Concomitant]
     Route: 048
     Dates: start: 20061114
  26. DOCUSATE SODIUM [Concomitant]
     Route: 048
     Dates: start: 20061112, end: 20061101
  27. LORAZEPAM [Concomitant]
     Dosage: 1 - 2 MG
     Route: 060
     Dates: start: 20061112
  28. PROCHLORPERAZINE [Concomitant]
     Route: 051
     Dates: start: 20061112
  29. FUROSEMIDE [Concomitant]
     Route: 051
     Dates: start: 20061113, end: 20061114
  30. SODIUM BICARBONATE [Concomitant]
     Route: 048
     Dates: start: 20061114, end: 20061101
  31. DOMPERIDONE [Concomitant]
     Route: 048
     Dates: start: 20061114
  32. TYLENOL-500 [Concomitant]
     Indication: PAIN
     Dosage: 300/30 MG
     Route: 048
     Dates: start: 20061011, end: 20061112
  33. ONDANSETRON [Concomitant]
     Route: 051
     Dates: start: 20061114, end: 20061116
  34. POTASSIUM CHLORIDE [Concomitant]
     Route: 048
     Dates: start: 20061124, end: 20061124
  35. HEXYLRESORCINOL [Concomitant]
     Route: 048
     Dates: start: 20061126
  36. REVLIMID [Suspect]
     Route: 048
     Dates: start: 20061004, end: 20061112
  37. STEMETIL [Concomitant]
     Indication: NAUSEA
     Route: 048
     Dates: start: 20061011, end: 20061019
  38. DOCUSATE SODIUM [Concomitant]
     Route: 048
     Dates: start: 20061115
  39. PROCHLORPERAZINE [Concomitant]
     Route: 048
     Dates: start: 20061112
  40. SODIUM CHLORIDE 0.9% [Concomitant]
     Route: 051
     Dates: start: 20061116
  41. AMIODARONE [Concomitant]
     Route: 051
     Dates: start: 20061116, end: 20061101
  42. AMIODARONE [Concomitant]
     Route: 048
     Dates: start: 20061121
  43. HEPARIN [Concomitant]
     Dosage: 25000 UNITS IN DEXTROSE 5%
     Route: 051
     Dates: start: 20061112
  44. PLAVIX [Concomitant]
     Route: 065
  45. CLOPIDOGREL [Concomitant]
     Route: 048
     Dates: start: 20061112
  46. FUROSEMIDE [Concomitant]
     Route: 048
     Dates: start: 20061121, end: 20061123
  47. SENNA GLYCOSIDES [Concomitant]
     Route: 048
     Dates: start: 20061116
  48. ZOPICLONE [Concomitant]
     Dosage: 3.75 - 7.5 MG
     Route: 048
     Dates: start: 20061126

REACTIONS (2)
  - MYOCARDIAL INFARCTION [None]
  - TUMOUR LYSIS SYNDROME [None]
